FAERS Safety Report 13234533 (Version 6)
Quarter: 2017Q1

REPORT INFORMATION
  Report Type: Spontaneous
  Country: US (occurrence: US)
  Receive Date: 20170215
  Receipt Date: 20170331
  Transmission Date: 20170428
  Serious: No
  Sender: FDA-Public Use
  Company Number: US-PFIZER INC-2017065489

PATIENT
  Age: 20 Year
  Sex: Male

DRUGS (6)
  1. RITUXIMAB [Suspect]
     Active Substance: RITUXIMAB
     Indication: LEUKAEMIA RECURRENT
     Dosage: UNK UNK, WEEKLY
  2. BORTEZOMIB [Suspect]
     Active Substance: BORTEZOMIB
     Dosage: UNK, MONTHLY [1-2X]
  3. DEXAMETHASONE. [Suspect]
     Active Substance: DEXAMETHASONE
     Indication: LEUKAEMIA RECURRENT
     Dosage: UNK UNK, ALTERNATE DAY
  4. VINCRISTINE SULFATE. [Suspect]
     Active Substance: VINCRISTINE SULFATE
     Indication: LEUKAEMIA RECURRENT
     Dosage: UNK
  5. BORTEZOMIB [Suspect]
     Active Substance: BORTEZOMIB
     Indication: LEUKAEMIA RECURRENT
     Dosage: UNK UNK, WEEKLY
     Route: 058
  6. 6 MP [Suspect]
     Active Substance: MERCAPTOPURINE
     Indication: LEUKAEMIA RECURRENT
     Dosage: UNK UNK, ALTERNATE DAY

REACTIONS (1)
  - Neoplasm recurrence [Unknown]

NARRATIVE: CASE EVENT DATE: 201602
